FAERS Safety Report 18301994 (Version 1)
Quarter: 2020Q3

REPORT INFORMATION
  Report Type: Spontaneous
  Country: DE (occurrence: DE)
  Receive Date: 20200923
  Receipt Date: 20200923
  Transmission Date: 20201103
  Serious: Yes (Other)
  Sender: FDA-Public Use
  Company Number: NVSC2020DE255799

PATIENT
  Sex: Female

DRUGS (4)
  1. TASIGNA [Suspect]
     Active Substance: NILOTINIB
     Dosage: 450 MG, QD
     Route: 065
     Dates: start: 2020
  2. TASIGNA [Suspect]
     Active Substance: NILOTINIB
     Dosage: 600 MG, QD
     Route: 065
  3. TASIGNA [Suspect]
     Active Substance: NILOTINIB
     Indication: CHRONIC MYELOID LEUKAEMIA
     Dosage: UNK
     Route: 065
  4. TASIGNA [Suspect]
     Active Substance: NILOTINIB
     Dosage: 450 MG, QD
     Route: 065
     Dates: end: 2020

REACTIONS (8)
  - Pericardial effusion [Unknown]
  - Intestinal ulcer [Unknown]
  - Pulmonary oedema [Unknown]
  - Lipoprotein increased [Unknown]
  - Low density lipoprotein increased [Unknown]
  - Neoplasm progression [Unknown]
  - Pain [Recovering/Resolving]
  - Pericarditis [Unknown]

NARRATIVE: CASE EVENT DATE: 2020
